FAERS Safety Report 5460760-8 (Version None)
Quarter: 2007Q3

REPORT INFORMATION
  Report Type: 
  Country: None (occurrence: None)
  Receive Date: 20070918
  Receipt Date: 20040128
  Transmission Date: 20080115
  Serious: Yes (Life-Threatening, Hospitalization, Congenital Anomaly)
  Sender: FDA-Public Use
  Company Number: 6006742

PATIENT
  Age: 1 Day
  Sex: Male

DRUGS (1)
  1. PAROXETINE [Suspect]
     Indication: DRUG USE FOR UNKNOWN INDICATION
     Dosage: 20 M G TAKEN BY THE MOTHER DURING THE PREGNANCY TRANSPLACENTAL LESS THAN 9 MONTH
     Route: 064

REACTIONS (8)
  - CEREBRAL ATROPHY [None]
  - CONGENITAL NEUROLOGICAL DISORDER [None]
  - CONVULSION NEONATAL [None]
  - DRUG EXPOSURE DURING PREGNANCY [None]
  - GLASGOW COMA SCALE ABNORMAL [None]
  - INFANTILE APNOEIC ATTACK [None]
  - INTRAVENTRICULAR HAEMORRHAGE NEONATAL [None]
  - THROMBOCYTOPENIA NEONATAL [None]
